FAERS Safety Report 9350826 (Version 1)
Quarter: 2013Q2

REPORT INFORMATION
  Report Type: Spontaneous
  Country: US (occurrence: US)
  Receive Date: 20130617
  Receipt Date: 20130617
  Transmission Date: 20140414
  Serious: No
  Sender: FDA-Public Use
  Company Number: US-PFIZER INC-2013180408

PATIENT
  Age: 29 Year
  Sex: Male
  Weight: 70.3 kg

DRUGS (1)
  1. EFFEXOR XR [Suspect]
     Dosage: 75 MG, 2X/DAY
     Route: 048

REACTIONS (2)
  - Personality change [Unknown]
  - Somnolence [Unknown]
